FAERS Safety Report 9553772 (Version 2)
Quarter: 2013Q4

REPORT INFORMATION
  Report Type: Report from Study
  Country: JP (occurrence: JP)
  Receive Date: 20130925
  Receipt Date: 20131218
  Transmission Date: 20140711
  Serious: Yes (Other)
  Sender: FDA-Public Use
  Company Number: PHHY2013JP106527

PATIENT
  Age: 51 Year
  Sex: Male

DRUGS (9)
  1. AMN107 [Suspect]
     Indication: CHRONIC MYELOID LEUKAEMIA
     Dosage: 800 MG, DAILY
     Route: 048
     Dates: start: 20100220
  2. ADALAT [Concomitant]
     Dosage: 40 MG
     Route: 048
     Dates: start: 20050829
  3. URINORM [Concomitant]
     Dosage: 50 MG
     Route: 048
     Dates: start: 20061124
  4. MICARDIS [Concomitant]
     Dosage: 40 MG
     Route: 048
     Dates: start: 20070831
  5. COVERSYL                                /BEL/ [Concomitant]
     Dosage: 4 MG
     Route: 048
     Dates: start: 20050831
  6. TENORMIN [Concomitant]
     Dosage: 100 MG
     Route: 048
     Dates: start: 20050902
  7. BEZATOL [Concomitant]
     Dosage: 400 MG
     Route: 048
     Dates: start: 20061124
  8. GASTER D [Concomitant]
     Dosage: 20 MG
     Route: 048
     Dates: start: 20050904
  9. ZETIA [Concomitant]
     Dosage: 10 MG
     Route: 048
     Dates: start: 20120927

REACTIONS (1)
  - Blood phosphorus decreased [Not Recovered/Not Resolved]
